FAERS Safety Report 4912222-1 (Version None)
Quarter: 2006Q1

REPORT INFORMATION
  Report Type: 
  Country: None (occurrence: None)
  Receive Date: 20060215
  Receipt Date: 20051021
  Transmission Date: 20060701
  Serious: No
  Sender: FDA-Public Use
  Company Number: US-GLAXOSMITHKLINE-A0579175A

PATIENT
  Age: 65 Year
  Sex: Female

DRUGS (5)
  1. VALTREX [Suspect]
     Dosage: 500MG TWICE PER DAY
     Route: 048
     Dates: start: 20050901, end: 20051018
  2. LIPITOR [Concomitant]
  3. ASPIRIN [Concomitant]
  4. MACROBID [Concomitant]
  5. ISOSORBIDE DINITRATE [Concomitant]

REACTIONS (3)
  - BURNING SENSATION [None]
  - CHROMATURIA [None]
  - HYPERHIDROSIS [None]
